FAERS Safety Report 6222652-6 (Version None)
Quarter: 2009Q2

REPORT INFORMATION
  Report Type: 
  Country: None (occurrence: None)
  Receive Date: 20090609
  Receipt Date: 20090609
  Transmission Date: 20091009
  Serious: Yes (Hospitalization)
  Sender: FDA-Public Use
  Company Number: None

PATIENT
  Age: 63 Year
  Sex: Female
  Weight: 48 kg

DRUGS (1)
  1. ROMAZICON [Suspect]
     Indication: LETHARGY
     Dosage: 0.2 MG ONCE IV
     Route: 042

REACTIONS (1)
  - CONVULSION [None]
